FAERS Safety Report 9023377 (Version 1)
Quarter: 2013Q1

REPORT INFORMATION
  Report Type: Spontaneous
  Country: FR (occurrence: FR)
  Receive Date: 20130117
  Receipt Date: 20130117
  Transmission Date: 20140127
  Serious: Yes (Hospitalization)
  Sender: FDA-Public Use
  Company Number: FR-ASTRAZENECA-2013SE02474

PATIENT
  Age: 1046 Month
  Sex: Male

DRUGS (16)
  1. INEXIUM [Suspect]
     Route: 048
     Dates: start: 201208, end: 201210
  2. LEVOTHYROX [Concomitant]
  3. CLOPIDOGREL [Concomitant]
  4. RAMIPRIL [Concomitant]
  5. FUROSEMIDE [Concomitant]
  6. ZOLPIDEM [Concomitant]
  7. SPECIAFOLDINE [Concomitant]
  8. FORTZAAR [Concomitant]
  9. ESOMEPRAZOLE [Concomitant]
  10. TEMESTA [Concomitant]
  11. ALFUZOSINE [Concomitant]
  12. GLIMEPIRIDE [Concomitant]
  13. SMECTA [Concomitant]
  14. ULTRALEVURE [Concomitant]
  15. FLAGYL [Concomitant]
  16. LASILIX [Concomitant]

REACTIONS (3)
  - Renal failure acute [Recovering/Resolving]
  - Tubulointerstitial nephritis [Recovering/Resolving]
  - Diarrhoea [Unknown]
